FAERS Safety Report 5417875-X (Version None)
Quarter: 2007Q3

REPORT INFORMATION
  Report Type: 
  Country: None (occurrence: None)
  Receive Date: 20070815
  Receipt Date: 20070730
  Transmission Date: 20080115
  Serious: Yes (Death)
  Sender: FDA-Public Use
  Company Number: CLOF-10617

PATIENT
  Age: 11 Year
  Sex: Male
  Weight: 37 kg

DRUGS (10)
  1. CLOFARABINE. MFR: GENZYME [Suspect]
     Indication: ADULT T-CELL LYMPHOMA/LEUKAEMIA
     Dosage: 40 MG/M2 QD IV
     Route: 042
     Dates: start: 20070720, end: 20070720
  2. PREDNISONE TAB [Concomitant]
  3. MORPHINE [Concomitant]
  4. ELITEK [Concomitant]
  5. DEXAMETHASONE 0.5MG TAB [Concomitant]
  6. FLUCONAZOLE [Concomitant]
  7. FAMCICLOVIR [Concomitant]
  8. IBRUPROFEN [Concomitant]
  9. OMEPRAZOLE [Concomitant]
  10. RANITIDINE [Concomitant]

REACTIONS (31)
  - AGITATION [None]
  - ANOREXIA [None]
  - ANXIETY [None]
  - ASCITES [None]
  - BLOOD CALCIUM INCREASED [None]
  - BLOOD LACTATE DEHYDROGENASE INCREASED [None]
  - BLOOD PHOSPHORUS DECREASED [None]
  - BLOOD POTASSIUM DECREASED [None]
  - CAPILLARY LEAK SYNDROME [None]
  - CARDIO-RESPIRATORY ARREST [None]
  - FEELING ABNORMAL [None]
  - GAMMA-GLUTAMYLTRANSFERASE INCREASED [None]
  - HAEMATOCRIT DECREASED [None]
  - HAEMOGLOBIN DECREASED [None]
  - HEPATOMEGALY [None]
  - HYPOALBUMINAEMIA [None]
  - HYPOXIA [None]
  - MIGRAINE [None]
  - MOBILITY DECREASED [None]
  - NAUSEA [None]
  - NECK PAIN [None]
  - OEDEMA [None]
  - PLATELET COUNT DECREASED [None]
  - PLEURAL HAEMORRHAGE [None]
  - PROTEIN TOTAL DECREASED [None]
  - PULMONARY HAEMORRHAGE [None]
  - RENAL FUNCTION TEST ABNORMAL [None]
  - SPLENOMEGALY [None]
  - TACHYCARDIA [None]
  - TUMOUR LYSIS SYNDROME [None]
  - VOMITING [None]
